FAERS Safety Report 7275306-1 (Version None)
Quarter: 2011Q1

REPORT INFORMATION
  Report Type: 
  Country: None (occurrence: None)
  Receive Date: 20110204
  Receipt Date: 20110127
  Transmission Date: 20110831
  Serious: Yes (Hospitalization, Other)
  Sender: FDA-Public Use
  Company Number: PHHY2010JP88539

PATIENT
  Age: 39 Year
  Sex: Male

DRUGS (1)
  1. TEGRETOL [Suspect]
     Dosage: 100 MG, QD
     Route: 048
     Dates: start: 20091101, end: 20091205

REACTIONS (4)
  - PAIN [None]
  - DRUG ERUPTION [None]
  - HYPOAESTHESIA [None]
  - ILLUSION [None]
